FAERS Safety Report 6397899-9 (Version None)
Quarter: 2009Q4

REPORT INFORMATION
  Report Type: 
  Country: None (occurrence: None)
  Receive Date: 20091013
  Receipt Date: 20090930
  Transmission Date: 20100525
  Serious: Yes (Other)
  Sender: FDA-Public Use
  Company Number: US-PFIZER INC-2009254403

PATIENT
  Sex: Male

DRUGS (20)
  1. VIAGRA [Suspect]
     Dosage: 50 MG, AS NEEDED
     Route: 048
     Dates: start: 20051017
  2. CIALIS [Suspect]
     Dosage: UNK
     Dates: start: 20090401
  3. RANITIDINE [Concomitant]
     Dosage: 75 MG, AS NEEDED
  4. TYLENOL (CAPLET) [Concomitant]
     Dosage: UNK
  5. OPCON-A [Concomitant]
     Dosage: UNK
  6. OPTIVE [Concomitant]
     Dosage: UNK
  7. OMEGA 3-6-9 [Concomitant]
  8. CALTRATE [Concomitant]
  9. ASCORBIC ACID [Concomitant]
  10. VITAMIN B-12 [Concomitant]
  11. VITAMIN B6 [Concomitant]
  12. MULTIVITAMIN [Concomitant]
  13. LUTEIN [Concomitant]
  14. ASPIRIN [Concomitant]
     Dosage: 81 MG, 1X/DAY
  15. LISINOPRIL [Concomitant]
     Dosage: 20 MG, 1X/DAY
  16. ATENOLOL [Concomitant]
     Dosage: 25 MG, 1X/DAY
  17. PRAVASTATIN [Concomitant]
     Dosage: 20 MG, 1X/DAY
  18. LEVOTHYROXINE [Concomitant]
     Dosage: 150 UG, 1X/DAY
  19. OMEPRAZOLE [Concomitant]
     Dosage: 40 MG, 1X/DAY
  20. INSULIN DETEMIR [Concomitant]
     Dosage: UNK

REACTIONS (2)
  - BLINDNESS UNILATERAL [None]
  - CHORIORETINOPATHY [None]
